FAERS Safety Report 23256048 (Version 1)
Quarter: 2023Q4

REPORT INFORMATION
  Report Type: Spontaneous
  Country: CA (occurrence: CA)
  Receive Date: 20231204
  Receipt Date: 20231204
  Transmission Date: 20240110
  Serious: Yes (Other)
  Sender: FDA-Public Use
  Company Number: CA-CELLTRION INC.-2023CA023119

PATIENT

DRUGS (9)
  1. INFLECTRA [Suspect]
     Active Substance: INFLIXIMAB-DYYB
     Indication: Psoriatic arthropathy
     Dosage: 400 MG,Q 0, 2, 6 WEEKS, THEN EVERY 8 WEEKS
     Route: 041
     Dates: start: 20200716, end: 20210420
  2. INFLECTRA [Suspect]
     Active Substance: INFLIXIMAB-DYYB
     Dosage: 400 MG, EVERY 6 WEEKS
     Route: 041
     Dates: start: 20210601, end: 20210824
  3. INFLECTRA [Suspect]
     Active Substance: INFLIXIMAB-DYYB
     Dosage: 400 MG, EVERY 5 WEEKS
     Route: 041
     Dates: start: 20211007
  4. INFLECTRA [Suspect]
     Active Substance: INFLIXIMAB-DYYB
     Dosage: 400 MG, EVERY 5 WEEKS
     Route: 041
     Dates: start: 20231020
  5. INFLECTRA [Suspect]
     Active Substance: INFLIXIMAB-DYYB
     Dosage: 400 MG, AFTER 4 WEEKS AND 6 DAYS, (EVERY 5 WEEKS)
     Route: 041
     Dates: start: 20231123
  6. METHOTREXATE [Concomitant]
     Active Substance: METHOTREXATE
     Dosage: 1 DF, DOSAGE INFO:  UNKNOWN. ONGOING STATUS UNKNOWN
     Route: 065
     Dates: start: 20030615
  7. METHOTREXATE [Concomitant]
     Active Substance: METHOTREXATE
     Dosage: 15 MG, WEEKLY
     Route: 048
  8. NAPROXEN [Concomitant]
     Active Substance: NAPROXEN
     Dosage: 1 DF, AS NEEDED (DOSAGE INFO: UNKNOWN)
     Route: 065
     Dates: start: 20190615
  9. ZOLOFT [Concomitant]
     Active Substance: SERTRALINE HYDROCHLORIDE
     Dosage: 150 MG, FREQUENCY:  UNKNOWN
     Route: 065
     Dates: start: 20200505

REACTIONS (3)
  - Herpes zoster [Recovering/Resolving]
  - Neuralgia [Unknown]
  - Off label use [Unknown]

NARRATIVE: CASE EVENT DATE: 20210601
